FAERS Safety Report 6327965-5 (Version None)
Quarter: 2009Q3

REPORT INFORMATION
  Report Type: 
  Country: None (occurrence: None)
  Receive Date: 20090824
  Receipt Date: 20090727
  Transmission Date: 20100115
  Serious: Yes (Other)
  Sender: FDA-Public Use
  Company Number: 002516

PATIENT
  Age: 74 Year
  Sex: Male

DRUGS (1)
  1. MACUGEN [Suspect]
     Indication: MACULAR DEGENERATION
     Dosage: 0.3MG, 1 EVERY 6 WEEKS, INTRAOCULAR
     Route: 031
     Dates: start: 20060906, end: 20090123

REACTIONS (3)
  - HAEMOGLOBIN DECREASED [None]
  - MALAISE [None]
  - NON-SMALL CELL LUNG CANCER RECURRENT [None]
